FAERS Safety Report 21924300 (Version 2)
Quarter: 2023Q1

REPORT INFORMATION
  Report Type: Report from Study
  Country: IN (occurrence: IN)
  Receive Date: 20230130
  Receipt Date: 20230301
  Transmission Date: 20230418
  Serious: Yes (Other)
  Sender: FDA-Public Use
  Company Number: IN-002147023-NVSC2022IN210694

PATIENT
  Sex: Male

DRUGS (4)
  1. SECUKINUMAB [Suspect]
     Active Substance: SECUKINUMAB
     Indication: Psoriasis
     Dosage: 150 MG, QW
     Route: 058
  2. SECUKINUMAB [Suspect]
     Active Substance: SECUKINUMAB
     Indication: Psoriatic arthropathy
     Dosage: 150 MG, QMO
     Route: 058
  3. SECUKINUMAB [Suspect]
     Active Substance: SECUKINUMAB
     Dosage: UNK
     Route: 058
     Dates: start: 20221122
  4. SECUKINUMAB [Suspect]
     Active Substance: SECUKINUMAB
     Dosage: 150 MG, QMO
     Route: 058
     Dates: start: 20221227

REACTIONS (9)
  - Diabetes mellitus [Unknown]
  - Hypertension [Unknown]
  - Arthralgia [Unknown]
  - Spinal disorder [Unknown]
  - Pyrexia [Unknown]
  - Condition aggravated [Unknown]
  - Device leakage [Unknown]
  - Nasopharyngitis [Unknown]
  - Therapeutic product effect decreased [Unknown]
